FAERS Safety Report 8387807-3 (Version None)
Quarter: 2012Q2

REPORT INFORMATION
  Report Type: 
  Country: None (occurrence: None)
  Receive Date: 20120525
  Receipt Date: 20120502
  Transmission Date: 20120825
  Serious: No
  Sender: FDA-Public Use
  Company Number: US-BRISTOL-MYERS SQUIBB COMPANY-16567919

PATIENT

DRUGS (1)
  1. KOMBIGLYZE XR [Suspect]

REACTIONS (1)
  - PLATELET COUNT DECREASED [None]
